FAERS Safety Report 19617547 (Version 1)
Quarter: 2021Q3

REPORT INFORMATION
  Report Type: Spontaneous
  Country: US (occurrence: US)
  Receive Date: 20210727
  Receipt Date: 20210727
  Transmission Date: 20211014
  Serious: No
  Sender: FDA-Public Use
  Company Number: US-ABBVIE-21K-163-3917469-00

PATIENT
  Age: 23 Year
  Sex: Female

DRUGS (2)
  1. ORILISSA [Suspect]
     Active Substance: ELAGOLIX SODIUM
     Route: 048
     Dates: start: 2021
  2. ORILISSA [Suspect]
     Active Substance: ELAGOLIX SODIUM
     Indication: PRODUCT USED FOR UNKNOWN INDICATION
     Route: 048
     Dates: start: 202101, end: 2021

REACTIONS (15)
  - Bone pain [Recovering/Resolving]
  - Fatigue [Not Recovered/Not Resolved]
  - Hot flush [Not Recovered/Not Resolved]
  - Loss of libido [Unknown]
  - Insomnia [Unknown]
  - Arthralgia [Recovering/Resolving]
  - Dry skin [Unknown]
  - Muscle atrophy [Recovering/Resolving]
  - Hair texture abnormal [Unknown]
  - Abdominal distension [Not Recovered/Not Resolved]
  - Depression [Not Recovered/Not Resolved]
  - Headache [Unknown]
  - Eye disorder [Unknown]
  - Ear discomfort [Unknown]
  - Decreased interest [Unknown]

NARRATIVE: CASE EVENT DATE: 2021
